FAERS Safety Report 22029748 (Version 2)
Quarter: 2023Q2

REPORT INFORMATION
  Report Type: Spontaneous
  Country: US (occurrence: US)
  Receive Date: 20230223
  Receipt Date: 20230405
  Transmission Date: 20230721
  Serious: No
  Sender: FDA-Public Use
  Company Number: US-PFIZER INC-202300076180

PATIENT
  Age: 82 Year
  Sex: Male
  Weight: 90.72 kg

DRUGS (2)
  1. PAXLOVID [Suspect]
     Active Substance: NIRMATRELVIR\RITONAVIR
     Indication: SARS-CoV-2 test positive
     Dosage: [PF-07321332 150 MG]/[RITONAVIR 100 MG]; 2X/DAY
     Route: 048
     Dates: end: 20230219
  2. ALFUZOSIN [Concomitant]
     Active Substance: ALFUZOSIN
     Indication: Prostatic disorder
     Dosage: 10MG SMALL TABLET ONCE A DAY
     Route: 048

REACTIONS (2)
  - Incorrect product administration duration [Unknown]
  - Contraindicated product administered [Unknown]
